FAERS Safety Report 9915566 (Version 2)
Quarter: 2014Q1

REPORT INFORMATION
  Report Type: Spontaneous
  Country: BE (occurrence: BE)
  Receive Date: 20140221
  Receipt Date: 20140224
  Transmission Date: 20141002
  Serious: Yes (Hospitalization)
  Sender: FDA-Public Use
  Company Number: BE-MERCK-1402BEL007712

PATIENT
  Age: 85 Year
  Sex: Female
  Weight: 60 kg

DRUGS (8)
  1. ZOCOR [Suspect]
     Indication: HYPERCHOLESTEROLAEMIA
     Dosage: 20 MG, QD
     Route: 048
     Dates: start: 20130801, end: 2013
  2. HYPAN [Interacting]
     Indication: HYPERTENSION
     Dosage: 40 MG, QD
     Route: 048
  3. NOBITEN [Concomitant]
     Dosage: 5 MG, QD
     Route: 048
  4. ZESTORETIC [Concomitant]
     Dosage: 20/12.5 MG ONCE A DAY
     Route: 048
  5. ASAFLOW [Concomitant]
     Dosage: 80 MG, QD
     Route: 048
  6. CATAPRESSAN [Concomitant]
     Dosage: 2 TABLETS (0.15MG TABLET) ONCE A DAY
     Route: 048
  7. BROMAZEPAM [Concomitant]
     Dosage: 1 TABLET 6MG ONCE A DAY
     Route: 048
  8. BEFACT FORTE [Concomitant]
     Dosage: 1 TABLET ONCE A DAY
     Route: 048

REACTIONS (2)
  - Drug interaction [Recovered/Resolved]
  - Muscular weakness [Recovering/Resolving]
